FAERS Safety Report 17405431 (Version 1)
Quarter: 2020Q1

REPORT INFORMATION
  Report Type: Spontaneous
  Country: DE (occurrence: DE)
  Receive Date: 20200212
  Receipt Date: 20200212
  Transmission Date: 20200409
  Serious: Yes (Other)
  Sender: FDA-Public Use
  Company Number: DE-TEVA-2020-DE-1183999

PATIENT
  Age: 45 Year
  Sex: Male
  Weight: 54 kg

DRUGS (1)
  1. ROSUVASTATIN-RATIOPHARM 20 MG FILMTABLETTEN [Suspect]
     Active Substance: ROSUVASTATIN
     Indication: HYPERCHOLESTEROLAEMIA
     Dosage: 20 MG
     Route: 048
     Dates: start: 20190305, end: 20190802

REACTIONS (3)
  - Muscle spasms [Recovered/Resolved]
  - Dyspnoea at rest [Recovered/Resolved]
  - Chest discomfort [Recovered/Resolved]

NARRATIVE: CASE EVENT DATE: 201903
